FAERS Safety Report 16929892 (Version 1)
Quarter: 2019Q4

REPORT INFORMATION
  Report Type: Report from Study
  Country: US (occurrence: US)
  Receive Date: 20191017
  Receipt Date: 20191017
  Transmission Date: 20200122
  Serious: Yes (Hospitalization, Other)
  Sender: FDA-Public Use
  Company Number: US-BAYER-2019-183105

PATIENT
  Age: 64 Year
  Sex: Female

DRUGS (8)
  1. MONTELUKAST [Concomitant]
     Active Substance: MONTELUKAST SODIUM
     Dosage: UNK
  2. VALSARTAN. [Concomitant]
     Active Substance: VALSARTAN
     Dosage: UNK
  3. PSEUDOEPHEDRINE. [Concomitant]
     Active Substance: PSEUDOEPHEDRINE HYDROCHLORIDE
     Dosage: UNK
  4. VIMPAT [Concomitant]
     Active Substance: LACOSAMIDE
     Dosage: UNK
  5. CETIRIZINE [Concomitant]
     Active Substance: CETIRIZINE HYDROCHLORIDE
     Dosage: UNK
  6. STIVARGA [Suspect]
     Active Substance: REGORAFENIB
     Indication: COLON CANCER
     Dosage: DAILY DOSE 40 MG(FOR A WEEK)
  7. OXCARBAZEPINE. [Concomitant]
     Active Substance: OXCARBAZEPINE
     Dosage: UNK
  8. STIVARGA [Suspect]
     Active Substance: REGORAFENIB
     Indication: COLON CANCER
     Dosage: DAILY DOSE 80 MG (FOR A WEEK)

REACTIONS (9)
  - Delirium [Recovering/Resolving]
  - Fall [Recovering/Resolving]
  - Malaise [Recovering/Resolving]
  - Ammonia increased [None]
  - Hypersomnia [Recovering/Resolving]
  - Vomiting [None]
  - Traumatic fracture [Recovering/Resolving]
  - Off label use [None]
  - Food refusal [Recovering/Resolving]
